FAERS Safety Report 22264349 (Version 1)
Quarter: 2023Q2

REPORT INFORMATION
  Report Type: Spontaneous
  Country: US (occurrence: None)
  Receive Date: 20230427
  Receipt Date: 20230427
  Transmission Date: 20230722
  Serious: No
  Sender: FDA-Public Use
  Company Number: None

PATIENT
  Age: 43 Year
  Sex: Female
  Weight: 99 kg

DRUGS (3)
  1. INFLECTRA [Suspect]
     Active Substance: INFLIXIMAB-DYYB
     Indication: Hidradenitis
     Route: 042
  2. Diphenhydramine 25MG ORAL [Concomitant]
  3. Acetaminophen 325MG ORAL [Concomitant]

REACTIONS (2)
  - Hypotension [None]
  - Infusion related reaction [None]

NARRATIVE: CASE EVENT DATE: 20230420
